FAERS Safety Report 9238365 (Version 1)
Quarter: 2013Q2

REPORT INFORMATION
  Report Type: Spontaneous
  Country: DE (occurrence: None)
  Receive Date: 20130416
  Receipt Date: 20130416
  Transmission Date: 20140414
  Serious: Yes (Hospitalization, Other)
  Sender: FDA-Public Use
  Company Number: 2013P1004442

PATIENT
  Age: 7 Year
  Sex: Male

DRUGS (16)
  1. OMEPRAZOL (OMEPRAZOLE) (CON.) [Concomitant]
  2. NABIC 8.4% (SODIUM BICARBONATE) (CON.) [Concomitant]
  3. KEPINOL (SULFAMETHOXAZOLE/TRIMETHOPRIM) (CON.) [Concomitant]
  4. ACICLOVIR(CON- ) [Concomitant]
  5. NEORECORMON (EPOETIN BETA) (CON.) [Concomitant]
  6. CEFUROXIM (CEFUROXIME SODIUM) (CON.) [Concomitant]
  7. DECORTIN (PREDNISONE) (CON.) [Concomitant]
  8. DORMICUM (MIDAZOLAM MALEATE) (CON.) [Concomitant]
  9. KETANEST (KETAMINE) (CON.) [Concomitant]
  10. METAMIZOL (METAMIZOLE) (CON.) [Concomitant]
  11. PERFALGAN [Concomitant]
  12. LAS IX (FUROSEMIDE)(CON.) [Concomitant]
  13. FLUCONAZOLE [Suspect]
     Indication: URINARY TRACT INFECTION FUNGAL
     Dosage: 60 MG, Q24H; IV
     Route: 042
     Dates: start: 20110425
  14. SANDIMMUN OPTORAL [Suspect]
     Indication: RENAL TRANSPLANT
     Route: 048
     Dates: start: 20110413, end: 20110531
  15. FLUCONAZOL [Suspect]
     Dosage: 125 MG; Q72H;
     Dates: start: 20110429, end: 20110516
  16. CELLCEPT (MYCOPHENOLATE MOFETIL) (CON.) [Concomitant]

REACTIONS (2)
  - Disturbance in attention [None]
  - Encephalitis [None]
